FAERS Safety Report 23809140 (Version 3)
Quarter: 2025Q1

REPORT INFORMATION
  Report Type: Report from Study
  Country: US (occurrence: US)
  Receive Date: 20240502
  Receipt Date: 20250314
  Transmission Date: 20250409
  Serious: Yes (Other)
  Sender: JAZZ
  Company Number: US-JAZZ PHARMACEUTICALS-2024-US-003978

PATIENT
  Sex: Female

DRUGS (40)
  1. XYWAV [Suspect]
     Active Substance: CALCIUM OXYBATE\MAGNESIUM OXYBATE\POTASSIUM OXYBATE\SODIUM OXYBATE
     Indication: Narcolepsy
  2. XYWAV [Suspect]
     Active Substance: CALCIUM OXYBATE\MAGNESIUM OXYBATE\POTASSIUM OXYBATE\SODIUM OXYBATE
     Indication: Cataplexy
     Dosage: 3.75 GRAM, BID
  3. XYWAV [Suspect]
     Active Substance: CALCIUM OXYBATE\MAGNESIUM OXYBATE\POTASSIUM OXYBATE\SODIUM OXYBATE
     Indication: Somnolence
  4. ASPIRIN [Concomitant]
     Active Substance: ASPIRIN
     Indication: Product used for unknown indication
     Dates: start: 20150415
  5. GABAPENTIN [Concomitant]
     Active Substance: GABAPENTIN
     Indication: Product used for unknown indication
     Dates: start: 20150415
  6. EVENING PRIMROSE [Concomitant]
     Indication: Product used for unknown indication
     Dates: start: 20150415
  7. ZETIA [Concomitant]
     Active Substance: EZETIMIBE
     Indication: Product used for unknown indication
     Dates: start: 20150415
  8. CLOBETASOL [Concomitant]
     Active Substance: CLOBETASOL
     Indication: Product used for unknown indication
     Dates: start: 20150415
  9. TART CHERRY [Concomitant]
     Indication: Product used for unknown indication
     Dates: start: 20150415
  10. UBIQUINOL [Concomitant]
     Active Substance: UBIQUINOL
     Indication: Product used for unknown indication
     Dates: start: 20150415
  11. APPLE CIDER VINEGAR [MALUS SPP. VINEGAR EXTRACT] [Concomitant]
     Indication: Product used for unknown indication
     Dates: start: 20150415
  12. NUVIGIL [Concomitant]
     Active Substance: ARMODAFINIL
     Indication: Product used for unknown indication
     Dates: start: 20150415
  13. VITAMIN B12 [Concomitant]
     Active Substance: CYANOCOBALAMIN
     Indication: Product used for unknown indication
     Dates: start: 20150412
  14. SALINE HIPERTONICO [Concomitant]
     Indication: Product used for unknown indication
     Dates: start: 20150415
  15. ACETAMINOPHEN [Concomitant]
     Active Substance: ACETAMINOPHEN
     Indication: Product used for unknown indication
     Dates: start: 20150409
  16. IBUPROFEN [Concomitant]
     Active Substance: IBUPROFEN
     Indication: Product used for unknown indication
     Dates: start: 20150409
  17. FELODIPINE [Concomitant]
     Active Substance: FELODIPINE
     Indication: Product used for unknown indication
     Dates: start: 20150409
  18. MUSHROOM 5 COMPLEX [Concomitant]
     Indication: Product used for unknown indication
     Dates: start: 20170403
  19. HERBALS\TURMERIC [Concomitant]
     Active Substance: HERBALS\TURMERIC
     Indication: Product used for unknown indication
     Dates: start: 20171002
  20. BIOTIN [Concomitant]
     Active Substance: BIOTIN
     Indication: Product used for unknown indication
     Dates: start: 20130404
  21. OMEGA 7 [Concomitant]
     Indication: Product used for unknown indication
     Dates: start: 20130404
  22. COENZYME COQ10 [Concomitant]
     Indication: Product used for unknown indication
     Dates: start: 20130404
  23. ROSUVASTATIN CALCIUM [Concomitant]
     Active Substance: ROSUVASTATIN CALCIUM
     Indication: Product used for unknown indication
     Dates: start: 20200316
  24. ZYRTEC [Concomitant]
     Active Substance: CETIRIZINE HYDROCHLORIDE
     Indication: Product used for unknown indication
     Dates: start: 20200404
  25. LIDOCAINE [Concomitant]
     Active Substance: LIDOCAINE
     Indication: Product used for unknown indication
     Dates: start: 20190404
  26. DICLOFENAC SODIUM [Concomitant]
     Active Substance: DICLOFENAC SODIUM
     Indication: Product used for unknown indication
     Dates: start: 20190404
  27. BILBERRY [Concomitant]
     Active Substance: BILBERRY
     Indication: Product used for unknown indication
     Dates: start: 20140404
  28. PSYLLIUM HUSK [Concomitant]
     Active Substance: PSYLLIUM HUSK
     Indication: Product used for unknown indication
     Dates: start: 20140404
  29. FIBER THERAPY (CALCIUM POLYCARBOPHIL) [Concomitant]
     Active Substance: CALCIUM POLYCARBOPHIL
     Indication: Product used for unknown indication
     Dates: start: 20140404
  30. HYALURONIC ACID [Concomitant]
     Active Substance: HYALURONIC ACID
     Indication: Product used for unknown indication
     Dates: start: 20180404
  31. MULBERRY [MORUS ALBA] [Concomitant]
     Indication: Product used for unknown indication
     Dates: start: 20200404
  32. IMMUNE 4 [Concomitant]
     Indication: Product used for unknown indication
     Dates: start: 20130404
  33. GUTCONNECT 365 [Concomitant]
     Indication: Product used for unknown indication
     Dates: start: 20170404
  34. CALCIUM CARBONATE\CHOLECALCIFEROL [Concomitant]
     Active Substance: CALCIUM CARBONATE\CHOLECALCIFEROL
     Indication: Product used for unknown indication
     Dates: start: 20200404
  35. ADVANCED AMBROTOSE [Concomitant]
     Indication: Product used for unknown indication
     Dates: start: 20190404
  36. SILICA (VEGETAL) [Concomitant]
     Indication: Product used for unknown indication
     Dates: start: 20220404
  37. DIETARY SUPPLEMENT [Concomitant]
     Active Substance: DIETARY SUPPLEMENT
     Indication: Product used for unknown indication
     Dates: start: 20170404
  38. LIVER HEALTH [Concomitant]
     Indication: Product used for unknown indication
     Dates: start: 20200404
  39. ARTIFICIAL TEARS [CARMELLOSE SODIUM] [Concomitant]
     Indication: Product used for unknown indication
     Dates: start: 20190404
  40. SAW PALMETTO BERRY [Concomitant]
     Indication: Product used for unknown indication
     Dates: start: 20230204

REACTIONS (5)
  - Neutropenia [Unknown]
  - Nasopharyngitis [Unknown]
  - Cough [Unknown]
  - Product administration interrupted [Unknown]
  - Intentional dose omission [Unknown]
